FAERS Safety Report 6761279-4 (Version None)
Quarter: 2010Q2

REPORT INFORMATION
  Report Type: 
  Country: None (occurrence: None)
  Receive Date: 20100608
  Receipt Date: 20100601
  Transmission Date: 20101027
  Serious: Yes (Hospitalization)
  Sender: FDA-Public Use
  Company Number: US-GILEAD-2010-0029401

PATIENT
  Sex: Female

DRUGS (8)
  1. LETAIRIS [Suspect]
     Indication: PULMONARY ARTERIAL HYPERTENSION
     Route: 048
     Dates: start: 20100511
  2. ASPIRIN [Concomitant]
  3. COZAAR [Concomitant]
  4. HYDROCODONE-IBUPROPEN [Concomitant]
  5. LIPITOR [Concomitant]
  6. PEPCID [Concomitant]
  7. XANAX [Concomitant]
  8. ZYRTEC [Concomitant]

REACTIONS (2)
  - OXYGEN SATURATION DECREASED [None]
  - PNEUMONIA MYCOPLASMAL [None]
